FAERS Safety Report 11246805 (Version 1)
Quarter: 2015Q3

REPORT INFORMATION
  Report Type: Report from Study
  Country: PE (occurrence: PE)
  Receive Date: 20150708
  Receipt Date: 20150708
  Transmission Date: 20151125
  Serious: Yes (Hospitalization, Disabling)
  Sender: FDA-Public Use
  Company Number: PE-ROCHE-1603509

PATIENT
  Age: 69 Year
  Sex: Male

DRUGS (2)
  1. RIBAVIRIN. [Suspect]
     Active Substance: RIBAVIRIN
     Indication: CHRONIC HEPATITIS C
     Route: 048
     Dates: start: 20140722, end: 20150505
  2. PEGASYS [Suspect]
     Active Substance: PEGINTERFERON ALFA-2A
     Indication: CHRONIC HEPATITIS C
     Route: 058
     Dates: start: 20140722, end: 20150505

REACTIONS (5)
  - Liver disorder [Unknown]
  - Syncope [Unknown]
  - Abasia [Unknown]
  - Hypotension [Unknown]
  - Gait disturbance [Unknown]

NARRATIVE: CASE EVENT DATE: 201506
